FAERS Safety Report 8076465-3 (Version None)
Quarter: 2012Q1

REPORT INFORMATION
  Report Type: 
  Country: None (occurrence: None)
  Receive Date: 20120127
  Receipt Date: 20120124
  Transmission Date: 20120608
  Serious: Yes (Other)
  Sender: FDA-Public Use
  Company Number: DE-ROCHE-1033167

PATIENT
  Age: 54 Year
  Sex: Male

DRUGS (1)
  1. MABTHERA [Suspect]
     Indication: WEGENER'S GRANULOMATOSIS

REACTIONS (2)
  - HEPATITIS [None]
  - OFF LABEL USE [None]
